APPROVED DRUG PRODUCT: PROHANCE MULTIPACK
Active Ingredient: GADOTERIDOL
Strength: 279.3MG/ML
Dosage Form/Route: INJECTABLE;INJECTION
Application: N021489 | Product #001
Applicant: BRACCO DIAGNOSTICS INC
Approved: Oct 9, 2003 | RLD: Yes | RS: Yes | Type: RX